FAERS Safety Report 11529702 (Version 2)
Quarter: 2015Q4

REPORT INFORMATION
  Report Type: Report from Study
  Country: PL (occurrence: PL)
  Receive Date: 20150921
  Receipt Date: 20151012
  Transmission Date: 20160304
  Serious: Yes (Death)
  Sender: FDA-Public Use
  Company Number: PL-TEVA-593334ISR

PATIENT
  Age: 63 Year
  Sex: Female
  Weight: 69 kg

DRUGS (2)
  1. TREOSULFAN MEDAC [Suspect]
     Active Substance: TREOSULFAN
     Indication: ACUTE MYELOID LEUKAEMIA
     Dosage: 18 GRAM DAILY;
     Route: 042
     Dates: start: 20150822, end: 20150824
  2. FLUDARABINE TEVA [Suspect]
     Active Substance: FLUDARABINE PHOSPHATE
     Indication: ACUTE MYELOID LEUKAEMIA
     Dosage: 53 MILLIGRAM DAILY;
     Route: 042
     Dates: start: 20150820, end: 20150824

REACTIONS (2)
  - Pulmonary haemorrhage [Fatal]
  - Lung infection [Fatal]

NARRATIVE: CASE EVENT DATE: 20150906
